FAERS Safety Report 7811049-0 (Version None)
Quarter: 2011Q4

REPORT INFORMATION
  Report Type: 
  Country: None (occurrence: None)
  Receive Date: 20111013
  Receipt Date: 20110930
  Transmission Date: 20120403
  Serious: Yes (Hospitalization)
  Sender: FDA-Public Use
  Company Number: US-BAYER-2011-015032

PATIENT
  Sex: Female
  Weight: 106.58 kg

DRUGS (3)
  1. ALBUTEROL [Concomitant]
     Dosage: UNK
     Route: 055
     Dates: start: 20080501, end: 20090101
  2. YAZ [Suspect]
     Indication: PAIN
  3. YAZ [Suspect]
     Indication: CYST
     Dosage: UNK
     Dates: start: 20090801, end: 20091001

REACTIONS (4)
  - CHOLELITHIASIS [None]
  - PAIN [None]
  - GALLBLADDER DISORDER [None]
  - CHOLECYSTITIS CHRONIC [None]
